FAERS Safety Report 7889181-5 (Version None)
Quarter: 2011Q4

REPORT INFORMATION
  Report Type: 
  Country: None (occurrence: None)
  Receive Date: 20111103
  Receipt Date: 20111031
  Transmission Date: 20120403
  Serious: Yes (Life-Threatening, Hospitalization)
  Sender: FDA-Public Use
  Company Number: JP-B.I. PHARMACEUTICALS,INC./RIDGEFIELD-2011-BP-23970NB

PATIENT
  Age: 82 Year
  Sex: Female

DRUGS (6)
  1. MAGMITT [Concomitant]
     Indication: CONSTIPATION
     Dosage: 750 MG
     Route: 048
  2. PRADAXA [Suspect]
     Indication: ATRIAL FIBRILLATION
     Dosage: 220 MG
     Route: 048
  3. LANIRAPID [Concomitant]
     Indication: CARDIAC FAILURE CONGESTIVE
  4. DIGITALIS TAB [Concomitant]
     Indication: CARDIAC FAILURE CONGESTIVE
     Dosage: 1 ML
     Route: 030
     Dates: start: 20111008, end: 20111008
  5. LANIRAPID [Concomitant]
     Indication: ATRIAL FIBRILLATION
     Dosage: 0.1 MG
     Route: 048
  6. LASIX [Concomitant]
     Indication: CARDIAC FAILURE CONGESTIVE
     Dosage: 20 ML
     Route: 030
     Dates: start: 20111008, end: 20111008

REACTIONS (2)
  - CEREBRAL INFARCTION [None]
  - CARDIAC FAILURE CONGESTIVE [None]
